APPROVED DRUG PRODUCT: IBUPROFEN
Active Ingredient: IBUPROFEN
Strength: 800MG
Dosage Form/Route: TABLET;ORAL
Application: A071448 | Product #001
Applicant: SUN PHARMACEUTICAL INDUSTRIES INC
Approved: Feb 18, 1987 | RLD: No | RS: No | Type: DISCN